FAERS Safety Report 13478460 (Version 7)
Quarter: 2018Q1

REPORT INFORMATION
  Report Type: Spontaneous
  Country: JP (occurrence: JP)
  Receive Date: 20170425
  Receipt Date: 20180104
  Transmission Date: 20180508
  Serious: Yes (Death, Hospitalization, Other)
  Sender: FDA-Public Use
  Company Number: JP-009507513-1704JPN002084J

PATIENT
  Age: 70 Year
  Sex: Male
  Weight: 46 kg

DRUGS (2)
  1. KEYTRUDA [Suspect]
     Active Substance: PEMBROLIZUMAB
     Indication: LUNG SQUAMOUS CELL CARCINOMA STAGE IV
     Dosage: 200 MG, Q3W
     Route: 041
     Dates: start: 20170403, end: 20170425
  2. RINDERON V [Concomitant]
     Active Substance: BETAMETHASONE VALERATE
     Indication: SQUAMOUS CELL CARCINOMA OF LUNG
     Dosage: 1.0 MG, BID
     Route: 048

REACTIONS (3)
  - Malignant neoplasm progression [Fatal]
  - Malaise [Recovered/Resolved]
  - Hypophagia [Recovered/Resolved]

NARRATIVE: CASE EVENT DATE: 20170417
